FAERS Safety Report 14056872 (Version 2)
Quarter: 2017Q4

REPORT INFORMATION
  Report Type: Report from Study
  Country: IT (occurrence: IT)
  Receive Date: 20171006
  Receipt Date: 20171227
  Transmission Date: 20180321
  Serious: Yes (Death)
  Sender: FDA-Public Use
  Company Number: PHHY2017IT146772

PATIENT
  Age: 72 Year
  Sex: Male

DRUGS (1)
  1. LEPTOPROL [Suspect]
     Active Substance: LEUPROLIDE ACETATE
     Indication: PRODUCT USED FOR UNKNOWN INDICATION
     Dosage: 3.6 MG, UNK
     Route: 065
     Dates: start: 20150624

REACTIONS (1)
  - Death [Fatal]

NARRATIVE: CASE EVENT DATE: 20171002
